FAERS Safety Report 24689627 (Version 1)
Quarter: 2024Q4

REPORT INFORMATION
  Report Type: Spontaneous
  Country: FR (occurrence: FR)
  Receive Date: 20241203
  Receipt Date: 20241203
  Transmission Date: 20250115
  Serious: Yes (Hospitalization)
  Sender: RANBAXY
  Company Number: FR-AFSSAPS-TS2024001181

PATIENT
  Age: 71 Year
  Sex: Female

DRUGS (5)
  1. VALACYCLOVIR [Suspect]
     Active Substance: VALACYCLOVIR HYDROCHLORIDE
     Indication: Prophylaxis
     Dosage: 2 DOSAGE FORM, DAILY
     Route: 048
     Dates: start: 20241009, end: 20241012
  2. FASTURTEC [Suspect]
     Active Substance: RASBURICASE
     Indication: Prophylaxis
     Dosage: 1 DOSAGE FORM, IN TOTAL
     Route: 040
     Dates: start: 20241008, end: 20241008
  3. BENDAMUSTINE [Suspect]
     Active Substance: BENDAMUSTINE
     Indication: Marginal zone lymphoma
     Dosage: UNK
     Route: 040
     Dates: start: 20241008, end: 20241009
  4. RITUXIMAB [Suspect]
     Active Substance: RITUXIMAB
     Indication: Marginal zone lymphoma
     Dosage: UNK
     Route: 040
     Dates: start: 20241008, end: 20241008
  5. BACTRIM [Suspect]
     Active Substance: SULFAMETHOXAZOLE\TRIMETHOPRIM
     Indication: Prophylaxis
     Dosage: 1 DOSAGE FORM, QOD
     Route: 048
     Dates: start: 20241009, end: 20241011

REACTIONS (1)
  - Haemolytic anaemia [Recovering/Resolving]

NARRATIVE: CASE EVENT DATE: 20241009
